FAERS Safety Report 16569227 (Version 1)
Quarter: 2019Q3

REPORT INFORMATION
  Report Type: Spontaneous
  Country: US (occurrence: US)
  Receive Date: 20190714
  Receipt Date: 20190714
  Transmission Date: 20191004
  Serious: No
  Sender: FDA-Public Use
  Company Number: US-AMGEN-USASP2019110224

PATIENT
  Sex: Female

DRUGS (9)
  1. ORENCIA [Concomitant]
     Active Substance: ABATACEPT
  2. SALICID [Concomitant]
     Dosage: UNK
  3. ENBREL [Suspect]
     Active Substance: ETANERCEPT
     Indication: PRODUCT USED FOR UNKNOWN INDICATION
     Dosage: UNK
     Route: 065
  4. XELJANZ [Concomitant]
     Active Substance: TOFACITINIB CITRATE
     Indication: ARTHRITIS
     Dosage: UNK
  5. METHOTREXATE. [Concomitant]
     Active Substance: METHOTREXATE
  6. PREDNISONE. [Concomitant]
     Active Substance: PREDNISONE
  7. REMICADE [Concomitant]
     Active Substance: INFLIXIMAB
     Dosage: UNK
  8. CONTRAVE [Concomitant]
     Active Substance: BUPROPION HYDROCHLORIDE\NALTREXONE HYDROCHLORIDE
  9. ARAVA [Concomitant]
     Active Substance: LEFLUNOMIDE
     Dosage: UNK

REACTIONS (1)
  - Therapeutic product effect decreased [Unknown]
